FAERS Safety Report 7741489-X (Version None)
Quarter: 2011Q3

REPORT INFORMATION
  Report Type: 
  Country: None (occurrence: None)
  Receive Date: 20110909
  Receipt Date: 20110830
  Transmission Date: 20111222
  Serious: Yes (Hospitalization)
  Sender: FDA-Public Use
  Company Number: US-MERCK-1012USA03780

PATIENT
  Age: 55 Year
  Sex: Female

DRUGS (9)
  1. FOSAMAX [Suspect]
     Indication: OSTEOPOROSIS
     Route: 048
     Dates: start: 20010114, end: 20051118
  2. BONIVA [Suspect]
     Indication: OSTEOPOROSIS
     Route: 048
     Dates: start: 20060901, end: 20080830
  3. CHOLECALCIFEROL [Concomitant]
     Route: 065
     Dates: start: 19750101
  4. FOSAMAX [Suspect]
     Indication: OSTEOPENIA
     Route: 048
     Dates: start: 20010114, end: 20051118
  5. FOSAMAX [Suspect]
     Route: 048
     Dates: start: 20051217, end: 20060702
  6. SODIUM (UNSPECIFIED) [Concomitant]
     Route: 065
     Dates: start: 19750101
  7. FOSAMAX [Suspect]
     Route: 048
     Dates: start: 20051217, end: 20060702
  8. VITAMIN E [Concomitant]
     Route: 065
     Dates: start: 19750101
  9. CALCIUM (UNSPECIFIED) [Concomitant]
     Route: 065
     Dates: start: 19750101

REACTIONS (14)
  - GASTROINTESTINAL DISORDER [None]
  - HYPERTENSION [None]
  - GINGIVAL BLEEDING [None]
  - DENTAL CARIES [None]
  - ANXIETY [None]
  - FEMUR FRACTURE [None]
  - VITAMIN D DEFICIENCY [None]
  - ELECTROLYTE IMBALANCE [None]
  - GINGIVITIS [None]
  - IMPAIRED HEALING [None]
  - TOOTH FRACTURE [None]
  - FOOT FRACTURE [None]
  - CALCIUM DEFICIENCY [None]
  - BONE LOSS [None]
